FAERS Safety Report 17734421 (Version 3)
Quarter: 2020Q3

REPORT INFORMATION
  Report Type: Spontaneous
  Country: JP (occurrence: JP)
  Receive Date: 20200501
  Receipt Date: 20200723
  Transmission Date: 20201102
  Serious: Yes (Death, Other)
  Sender: FDA-Public Use
  Company Number: JP-TAKEDA-2020TUS020646

PATIENT
  Age: 84 Year
  Sex: Female
  Weight: 34.4 kg

DRUGS (15)
  1. GLUCONSAN K [Concomitant]
     Active Substance: POTASSIUM GLUCONATE
     Indication: HYPOKALAEMIA
     Dosage: 2.5 MILLIEQUIVALENT, TID
     Route: 048
     Dates: start: 201903, end: 20191017
  2. LOXOPROFEN SODIUM [Suspect]
     Active Substance: LOXOPROFEN SODIUM
     Indication: PAIN
     Dosage: 60 MILLIGRAM, TID
     Route: 048
     Dates: start: 20191008, end: 20191017
  3. HALFDIGOXIN [Concomitant]
     Active Substance: DIGOXIN
     Indication: CARDIAC FAILURE CONGESTIVE
     Dosage: UNK, QD
     Route: 048
     Dates: start: 201902, end: 20191017
  4. SPIRONOLACTONE. [Concomitant]
     Active Substance: SPIRONOLACTONE
     Indication: CARDIAC FAILURE CONGESTIVE
     Dosage: 25 MILLIGRAM, QD
     Route: 048
     Dates: start: 201903, end: 20191017
  5. PARACETAMOL [Suspect]
     Active Substance: ACETAMINOPHEN
     Indication: PAIN
     Dosage: 500 MILLIGRAM, TID
     Route: 048
     Dates: start: 20191006, end: 20191017
  6. FUROSEMIDE. [Concomitant]
     Active Substance: FUROSEMIDE
     Indication: CARDIAC FAILURE CONGESTIVE
     Dosage: 20 MILLIGRAM, QD
     Route: 048
     Dates: start: 201903, end: 20191017
  7. LIXIANA [Concomitant]
     Active Substance: EDOXABAN TOSYLATE
     Indication: ATRIAL FIBRILLATION
     Dosage: 30 MILLIGRAM, QD
     Route: 048
     Dates: start: 201902, end: 20191017
  8. MAGMITT [Concomitant]
     Active Substance: MAGNESIUM OXIDE
     Indication: CONSTIPATION
     Dosage: 250 MILLIGRAM, TID
     Route: 048
     Dates: start: 20160506, end: 20191017
  9. SARPOGRELATE HYDROCHLORIDE [Suspect]
     Active Substance: SARPOGRELATE HYDROCHLORIDE
     Indication: PAIN
     Dosage: 100 MILLIGRAM, TID
     Route: 048
     Dates: start: 20191011, end: 20191017
  10. ITOROL [Concomitant]
     Active Substance: ISOSORBIDE MONONITRATE
     Indication: ANGINA PECTORIS
     Dosage: 10 MILLIGRAM, BID
     Route: 048
     Dates: start: 201902, end: 20191017
  11. PREDNISOLONE. [Concomitant]
     Active Substance: PREDNISOLONE
     Indication: POLYMYALGIA RHEUMATICA
     Dosage: 10 MILLIGRAM, QD
     Route: 048
     Dates: end: 20191017
  12. BISOPROLOL [Concomitant]
     Active Substance: BISOPROLOL
     Indication: CARDIAC FAILURE CONGESTIVE
     Dosage: 0.625 MILLIGRAM, QD
     Route: 048
     Dates: start: 201902, end: 20191017
  13. FEBURIC [Suspect]
     Active Substance: FEBUXOSTAT
     Indication: HYPERURICAEMIA
     Dosage: 10 MILLIGRAM, QD
     Route: 048
     Dates: start: 20191004, end: 20191017
  14. RABEPRAZOLE SODIUM. [Concomitant]
     Active Substance: RABEPRAZOLE SODIUM
     Indication: GASTRIC ULCER
     Dosage: 10 MILLIGRAM, QD
     Route: 048
     Dates: start: 201405, end: 20191017
  15. TRESIBA [Concomitant]
     Active Substance: INSULIN DEGLUDEC
     Indication: DIABETES MELLITUS
     Dosage: 2 INTERNATIONAL UNIT, QD
     Route: 058
     Dates: end: 20191017

REACTIONS (3)
  - Gastrointestinal haemorrhage [Fatal]
  - Sudden cardiac death [Fatal]
  - Abdominal pain [Fatal]

NARRATIVE: CASE EVENT DATE: 20191015
